FAERS Safety Report 21135017 (Version 1)
Quarter: 2022Q3

REPORT INFORMATION
  Report Type: Spontaneous
  Country: US (occurrence: US)
  Receive Date: 20220727
  Receipt Date: 20220727
  Transmission Date: 20221027
  Serious: Yes (Death, Hospitalization, Other)
  Sender: FDA-Public Use
  Company Number: US-VELOXIS PHARMACEUTICALS-2022VELUS-000470

PATIENT
  Age: 47 Year
  Sex: Male

DRUGS (10)
  1. TACROLIMUS [Suspect]
     Active Substance: TACROLIMUS
     Indication: Prophylaxis against transplant rejection
     Dosage: WAS STARTED ON DAY 3 AFTER SURGERY AND WAS TITRATED BASED ON THE BLOOD LEVEL
  2. SOLU-MEDROL [Suspect]
     Active Substance: METHYLPREDNISOLONE SODIUM SUCCINATE
     Indication: Prophylaxis against transplant rejection
     Dosage: TAPER
  3. MYCOPHENOLATE MOFETIL [Suspect]
     Active Substance: MYCOPHENOLATE MOFETIL
     Indication: Prophylaxis against transplant rejection
     Dosage: UNK
     Route: 042
  4. BELATACEPT [Suspect]
     Active Substance: BELATACEPT
     Indication: Prophylaxis against transplant rejection
     Dosage: UNK
  5. VANCOMYCIN [Suspect]
     Active Substance: VANCOMYCIN
     Indication: Antibiotic therapy
     Dosage: UNK
  6. AVIBACTAM SODIUM\CEFTAZIDIME [Suspect]
     Active Substance: AVIBACTAM SODIUM\CEFTAZIDIME
     Indication: Antibiotic therapy
     Dosage: UNK
  7. AZTREONAM [Suspect]
     Active Substance: AZTREONAM
     Indication: Antibiotic therapy
     Dosage: UNK
  8. VALACYCLOVIR [Suspect]
     Active Substance: VALACYCLOVIR HYDROCHLORIDE
     Indication: Product used for unknown indication
     Dosage: STARTED ON DAY 3
  9. SULFAMETHOXAZOLE\TRIMETHOPRIM [Suspect]
     Active Substance: SULFAMETHOXAZOLE\TRIMETHOPRIM
     Indication: Product used for unknown indication
     Dosage: STARTED ON DAY 3
  10. CASPOFUNGIN [Suspect]
     Active Substance: CASPOFUNGIN
     Indication: Product used for unknown indication
     Dosage: STARTED ON DAY 3

REACTIONS (3)
  - Thrombotic microangiopathy [Fatal]
  - Antiphospholipid syndrome [Unknown]
  - Off label use [Unknown]
